FAERS Safety Report 9405432 (Version 1)
Quarter: 2013Q3

REPORT INFORMATION
  Report Type: Spontaneous
  Country: FR (occurrence: None)
  Receive Date: 20130715
  Receipt Date: 20130715
  Transmission Date: 20140515
  Serious: Yes (Hospitalization)
  Sender: FDA-Public Use
  Company Number: FR-012214

PATIENT
  Age: 68 Year
  Sex: Female

DRUGS (1)
  1. PICOPREP [Suspect]
     Indication: COLONOSCOPY
     Route: 048
     Dates: start: 20130528, end: 20130529

REACTIONS (2)
  - Cough [None]
  - Pyrexia [None]
